FAERS Safety Report 14324137 (Version 1)
Quarter: 2017Q4

REPORT INFORMATION
  Report Type: Not Available
  Country: US (occurrence: US)
  Receive Date: 20171226
  Receipt Date: 20171226
  Transmission Date: 20180321
  Serious: No
  Sender: FDA-Public Use
  Company Number: US-NEUROCRINE BIOSCIENCES INC.-2017NBI01441

PATIENT
  Age: 61 Year
  Sex: Female

DRUGS (5)
  1. CITALOPRAM [Concomitant]
     Active Substance: CITALOPRAM HYDROBROMIDE
  2. INGREZZA [Suspect]
     Active Substance: VALBENAZINE
     Indication: TARDIVE DYSKINESIA
     Route: 048
     Dates: start: 20170722, end: 20171016
  3. FLUPHENAZINE [Concomitant]
     Active Substance: FLUPHENAZINE
  4. ZIPRASIDONE. [Concomitant]
     Active Substance: ZIPRASIDONE
  5. PRAZOSIN. [Concomitant]
     Active Substance: PRAZOSIN

REACTIONS (1)
  - Condition aggravated [Unknown]

NARRATIVE: CASE EVENT DATE: 20170929
